FAERS Safety Report 10086946 (Version 1)
Quarter: 2014Q2

REPORT INFORMATION
  Report Type: Spontaneous
  Country: US (occurrence: US)
  Receive Date: 20140418
  Receipt Date: 20140418
  Transmission Date: 20141212
  Serious: Yes (Other)
  Sender: FDA-Public Use
  Company Number: US-BAXTER-2014BAX019359

PATIENT
  Age: 48 Year
  Sex: Female

DRUGS (2)
  1. GAMMAGARD LIQUID [Suspect]
     Indication: IMMUNE SYSTEM DISORDER
     Route: 058
     Dates: start: 20140301, end: 20140410
  2. ACETAMINOPHEN [Concomitant]
     Indication: PREMEDICATION
     Dosage: PRIOR TO GAMMAGARD LIQUID
     Route: 048

REACTIONS (1)
  - Meningitis aseptic [Recovered/Resolved]
